FAERS Safety Report 23809110 (Version 1)
Quarter: 2024Q2

REPORT INFORMATION
  Report Type: Spontaneous
  Country: FR (occurrence: FR)
  Receive Date: 20240502
  Receipt Date: 20240502
  Transmission Date: 20240716
  Serious: Yes (Other)
  Sender: FDA-Public Use
  Company Number: None

PATIENT
  Age: 75 Year
  Sex: Male

DRUGS (4)
  1. IRBESARTAN [Suspect]
     Active Substance: IRBESARTAN
     Indication: Hypertension
     Route: 065
     Dates: start: 202212, end: 2024
  2. TYPHIM VI [Suspect]
     Active Substance: SALMONELLA TYPHI TY2 VI POLYSACCHARIDE ANTIGEN
     Indication: Typhoid fever immunisation
     Dosage: TIME INTERVAL: TOTAL
     Route: 030
     Dates: start: 20240215, end: 20240215
  3. FLUDEX [Concomitant]
     Indication: Product used for unknown indication
     Route: 065
  4. STAMARIL [Suspect]
     Active Substance: YELLOW FEVER VIRUS STRAIN 17D-204 LIVE ANTIGEN
     Indication: Yellow fever immunisation
     Dosage: TIME INTERVAL: TOTAL
     Route: 030
     Dates: start: 20240215, end: 20240215

REACTIONS (1)
  - Rhabdomyolysis [Recovered/Resolved]

NARRATIVE: CASE EVENT DATE: 20240221
